FAERS Safety Report 9518306 (Version 1)
Quarter: 2013Q1

REPORT INFORMATION
  Report Type: Spontaneous
  Country: US (occurrence: None)
  Receive Date: 20130305
  Receipt Date: 20130305
  Transmission Date: 20140127
  Serious: Yes (Other)
  Sender: FDA-Public Use
  Company Number: 163-21880-12080997

PATIENT
  Sex: Male

DRUGS (8)
  1. REVLIMID (LENALIDOMIDE) [Suspect]
     Indication: PLASMA CELL MYELOMA
     Dosage: 15 MG, 21 IN 21 D, PO
     Route: 048
     Dates: start: 20110728
  2. SLEEP AID(SCOPOLAMINE AMINOXIDE HYDROBROMIDE) [Concomitant]
  3. VITAMIN D3(COLECALCIFEROL) [Concomitant]
  4. ALKERAN(MELPHAN) [Concomitant]
  5. PREDNISONE(PREDNISONE) [Concomitant]
  6. CIPROFLOXACIN HCL (CIPROFLOXACIN HYDROCHLORIDE) [Concomitant]
  7. HYDROCHLOROTHIAZIDE(HYDROCHLOROTHIAZIDE) [Concomitant]
  8. TRIHEXYPHENIDYL HCL (TRIHEXYPHENIDYL HYDROCHLORIDE) [Concomitant]

REACTIONS (5)
  - Phlebitis [None]
  - Dizziness [None]
  - Red blood cell count decreased [None]
  - Platelet count decreased [None]
  - White blood cell count decreased [None]
